FAERS Safety Report 10067642 (Version 2)
Quarter: 2014Q2

REPORT INFORMATION
  Report Type: Spontaneous
  Country: US (occurrence: US)
  Receive Date: 20140409
  Receipt Date: 20140618
  Transmission Date: 20141212
  Serious: Yes (Other)
  Sender: FDA-Public Use
  Company Number: US-ASTELLAS-2014US003605

PATIENT
  Age: 86 Year
  Sex: Female
  Weight: 57 kg

DRUGS (4)
  1. MYRBETRIQ [Suspect]
     Indication: HYPERTONIC BLADDER
     Route: 065
     Dates: start: 2013
  2. VESICARE [Suspect]
     Indication: PRODUCT USED FOR UNKNOWN INDICATION
     Route: 048
  3. VESICARE [Suspect]
     Route: 048
     Dates: start: 201404
  4. ZEMPLAR [Concomitant]
     Indication: PRODUCT USED FOR UNKNOWN INDICATION
     Route: 065

REACTIONS (4)
  - Hip fracture [Recovered/Resolved]
  - Malignant breast lump removal [Recovered/Resolved]
  - Pain [Recovered/Resolved]
  - Bladder pain [Recovered/Resolved]
